FAERS Safety Report 7917716-2 (Version None)
Quarter: 2011Q4

REPORT INFORMATION
  Report Type: 
  Country: None (occurrence: None)
  Receive Date: 20111116
  Receipt Date: 20111109
  Transmission Date: 20120403
  Serious: Yes (Death, Hospitalization)
  Sender: FDA-Public Use
  Company Number: US-CELGENEUS-163-21880-08101543

PATIENT
  Sex: Male

DRUGS (9)
  1. CREON [Concomitant]
     Indication: PANCREATIC ENZYMES
     Dosage: 2 CAPSULE
     Route: 048
     Dates: end: 20081102
  2. NEXIUM [Concomitant]
     Dosage: 40 MILLIGRAM
     Route: 048
     Dates: end: 20081102
  3. TRIAMCINOLONE [Concomitant]
     Dosage: .2 PERCENT
     Route: 061
     Dates: end: 20081102
  4. LEVAQUIN [Concomitant]
     Indication: INFECTION PROPHYLAXIS
     Dosage: 500 MILLIGRAM
     Route: 048
     Dates: end: 20081102
  5. REVLIMID [Suspect]
     Dosage: 2.5 MILLIGRAM
     Route: 048
     Dates: start: 20080423, end: 20081020
  6. DECADRON [Concomitant]
     Indication: INCREASED APPETITE
     Dosage: 2 MILLIGRAM
     Route: 048
  7. LORTAB [Concomitant]
     Indication: PAIN
     Dosage: 7.5/500MG
     Route: 048
  8. SINGULAIR [Concomitant]
     Dosage: 10 MILLIGRAM
     Route: 048
     Dates: end: 20081102
  9. SYNTHROID [Concomitant]
     Dosage: 200 MICROGRAM
     Route: 048
     Dates: end: 20081103

REACTIONS (1)
  - PANCREATIC CARCINOMA METASTATIC [None]
